FAERS Safety Report 15652365 (Version 1)
Quarter: 2018Q4

REPORT INFORMATION
  Report Type: Spontaneous
  Country: US (occurrence: US)
  Receive Date: 20181123
  Receipt Date: 20181123
  Transmission Date: 20190205
  Serious: No
  Sender: FDA-Public Use
  Company Number: US-FOUNDATIONCONSUMERHC-2018-US-014015

PATIENT
  Age: 34 Year
  Sex: Female
  Weight: 93.89 kg

DRUGS (2)
  1. TAKE ACTION [Suspect]
     Active Substance: LEVONORGESTREL
     Dosage: 1.5 MG
     Route: 048
     Dates: start: 20180514, end: 20180514
  2. TROKENDI [Concomitant]
     Active Substance: TOPIRAMATE
     Dosage: WAS TITRATING OFF DAILY MAINTENANCE DOSE IN THE 2 WEEKS PRIOR TO TAKE ACTION USE. BELIEVES SHE TOOK
     Dates: end: 20180514

REACTIONS (6)
  - Vaginal haemorrhage [Recovered/Resolved]
  - Menstruation delayed [Not Recovered/Not Resolved]
  - Ovarian cyst [Unknown]
  - Hypomenorrhoea [Not Recovered/Not Resolved]
  - Menstruation irregular [Not Recovered/Not Resolved]
  - Intentional product misuse [Recovered/Resolved]

NARRATIVE: CASE EVENT DATE: 201805
